FAERS Safety Report 5592576-6 (Version None)
Quarter: 2007Q4

REPORT INFORMATION
  Report Type: 
  Country: None (occurrence: None)
  Receive Date: 20071217
  Receipt Date: 20071004
  Transmission Date: 20080405
  Serious: Yes (Other)
  Sender: FDA-Public Use
  Company Number: 13930623

PATIENT
  Age: 61 Year
  Sex: Female

DRUGS (1)
  1. EMSAM [Suspect]
     Dosage: TD
     Route: 062

REACTIONS (2)
  - DIZZINESS [None]
  - FALL [None]
